FAERS Safety Report 10651659 (Version 1)
Quarter: 2014Q4

REPORT INFORMATION
  Report Type: Spontaneous
  Country: HU (occurrence: HU)
  Receive Date: 20141215
  Receipt Date: 20141215
  Transmission Date: 20150529
  Serious: Yes (Death)
  Sender: FDA-Public Use
  Company Number: HU-ACTELION-A-CH2014-109364

PATIENT
  Age: 58 Year
  Sex: Female

DRUGS (10)
  1. FAMOTIDIN [Concomitant]
     Dosage: 40 MG, OD
     Route: 048
     Dates: end: 20141208
  2. FUROSEMID [Concomitant]
     Active Substance: FUROSEMIDE
     Dosage: 40 MG, Q2WEEK
     Route: 048
     Dates: end: 20141208
  3. KALIUM [Concomitant]
     Active Substance: POTASSIUM CHLORIDE
     Dosage: UNK
     Route: 048
     Dates: end: 20141208
  4. ACID ACETYLSALICYLIC [Concomitant]
     Dosage: 100 MG, OD
     Route: 048
     Dates: end: 20141208
  5. ALPRAZOLAM. [Concomitant]
     Active Substance: ALPRAZOLAM
     Dosage: 0.125 MG, OD
     Route: 048
     Dates: end: 20141208
  6. METOPROLOL [Concomitant]
     Active Substance: METOPROLOL
     Dosage: UNK, BID
     Route: 048
     Dates: end: 20141208
  7. IRBESARTAN. [Concomitant]
     Active Substance: IRBESARTAN
     Dosage: 75 MG, OD
     Route: 048
     Dates: end: 20141208
  8. AMLODIPIN [Concomitant]
     Active Substance: AMLODIPINE BESYLATE
     Dosage: 5 MG, OD
     Route: 048
     Dates: end: 20141208
  9. SILDENAFIL. [Concomitant]
     Active Substance: SILDENAFIL
     Dosage: 20 MG, OD
     Route: 048
     Dates: end: 20141208
  10. TRACLEER [Suspect]
     Active Substance: BOSENTAN\BOSENTAN MONOHYDRATE
     Indication: PULMONARY ARTERIAL HYPERTENSION
     Dosage: 62.5 MG, BID
     Route: 048
     Dates: start: 20130711, end: 20141208

REACTIONS (7)
  - Blood lactate dehydrogenase increased [Unknown]
  - Blood bilirubin increased [Unknown]
  - Infection [Unknown]
  - Sepsis [Unknown]
  - Right ventricular failure [Fatal]
  - Condition aggravated [Unknown]
  - Atrial fibrillation [Unknown]

NARRATIVE: CASE EVENT DATE: 20140909
